FAERS Safety Report 22526379 (Version 1)
Quarter: 2023Q2

REPORT INFORMATION
  Report Type: Spontaneous
  Country: DE (occurrence: DE)
  Receive Date: 20230606
  Receipt Date: 20230606
  Transmission Date: 20230721
  Serious: Yes (Hospitalization, Other)
  Sender: FDA-Public Use
  Company Number: None

PATIENT
  Age: 77 Year
  Sex: Female

DRUGS (19)
  1. PIPERACILLIN AND TAZOBACTAM [Suspect]
     Active Substance: PIPERACILLIN SODIUM\TAZOBACTAM SODIUM
     Indication: Product used for unknown indication
     Dosage: 1-1-1-1??FORM OF ADMIN. INFUSION
     Route: 065
     Dates: start: 20230426, end: 20230508
  2. METHOTREXATE [Suspect]
     Active Substance: METHOTREXATE
     Indication: Product used for unknown indication
     Dosage: ONCE WEEKLY
     Route: 065
     Dates: start: 20230414, end: 20230505
  3. SULFAMETHOXAZOLE\TRIMETHOPRIM [Suspect]
     Active Substance: SULFAMETHOXAZOLE\TRIMETHOPRIM
     Indication: Product used for unknown indication
     Dosage: 1-0-1
     Route: 065
     Dates: start: 20230426, end: 20230507
  4. PANTOPRAZOLE [Suspect]
     Active Substance: PANTOPRAZOLE
     Indication: Product used for unknown indication
     Dosage: 1-0-0
     Route: 065
     Dates: start: 20230323, end: 20230509
  5. METAMIZOLE [Suspect]
     Active Substance: METAMIZOLE
     Indication: Pain
     Dosage: ONLY BOLI AS SHORT TERM INFUSION IF NEEDED
     Route: 065
     Dates: start: 20230409, end: 20230507
  6. Levodopa comp  100 mg/ 25 mg reatrd [Concomitant]
     Dosage: 0-0-1
     Dates: start: 20230328, end: 20230509
  7. Dronabinol Tropfen 2,5% [Concomitant]
     Indication: Product used for unknown indication
     Dosage: MORNING AND EVENING ?BDF-0090
     Route: 065
     Dates: start: 20230421, end: 20230509
  8. ONDANSETRON [Concomitant]
     Active Substance: ONDANSETRON
     Indication: Product used for unknown indication
     Dosage: 4 MG SHORT TERM INFUSION IF NEEDED ?PFT-22100
     Route: 065
     Dates: start: 20230404, end: 20230509
  9. Bisoprolol 5mg Tab [Concomitant]
     Indication: Product used for unknown indication
     Dosage: 1-0-0?BDF-0069
     Route: 065
     Dates: start: 20230323, end: 20230509
  10. Mirtazapin 15mg Tab [Concomitant]
     Indication: Product used for unknown indication
     Dosage: 0-0-1?BDF-0069
     Route: 065
     Dates: start: 20230420, end: 20230509
  11. Apixaban  5 mg Tab [Concomitant]
     Indication: Product used for unknown indication
     Dosage: 1-0-1?BDF-0069
     Route: 065
     Dates: start: 20230426, end: 20230508
  12. Spironolacton 50mg Tab [Concomitant]
     Indication: Product used for unknown indication
     Dosage: 1-0-0?BDF-0069
     Route: 065
     Dates: start: 20230418, end: 20230508
  13. Prednisolon  5mg Tab [Concomitant]
     Indication: Product used for unknown indication
     Dosage: 0-1/2-0?BDF-0069
     Route: 065
     Dates: start: 20230323, end: 20230509
  14. Lorazepam 5 mg Tab [Concomitant]
     Indication: Product used for unknown indication
     Dosage: 0-0-0-1?BDF-0069
     Route: 065
     Dates: start: 20230327, end: 20230507
  15. Sertralin  100mg Tab [Concomitant]
     Indication: Product used for unknown indication
     Dosage: 1-0-0?BDF-0069
     Route: 065
     Dates: start: 20230409, end: 20230509
  16. Piritramid 7,5 mg [Concomitant]
     Indication: Pain
     Dosage: AS NEEDED, 7.5 MG SHORT INFUSION (ONLY BOLUS IF PAIN) ?PFT-22100
     Route: 065
     Dates: start: 20230405, end: 20230509
  17. Macrogol Beutel [Concomitant]
     Indication: Product used for unknown indication
     Dosage: 1-0-0?UNKNOWN
     Route: 065
     Dates: start: 20230325, end: 20230505
  18. Levodopa comp  200 mg/50 mg [Concomitant]
     Indication: Product used for unknown indication
     Dosage: 1-1-0-0?UNKNOWN
     Route: 065
     Dates: start: 20230419, end: 20230509
  19. Levothyroxin 150?g; [Concomitant]
     Indication: Product used for unknown indication
     Dosage: 1-0-0
     Route: 065
     Dates: start: 20230417, end: 20230509

REACTIONS (3)
  - Thrombocytopenia [Not Recovered/Not Resolved]
  - Leukopenia [Not Recovered/Not Resolved]
  - Drug interaction [None]

NARRATIVE: CASE EVENT DATE: 20230504
